FAERS Safety Report 25728132 (Version 4)
Quarter: 2025Q4

REPORT INFORMATION
  Report Type: Spontaneous
  Country: EU (occurrence: EU)
  Receive Date: 20250826
  Receipt Date: 20251113
  Transmission Date: 20260118
  Serious: No
  Sender: PFIZER
  Company Number: EU-PFIZER INC-202500167844

PATIENT
  Age: 14 Year
  Sex: Male
  Weight: 52 kg

DRUGS (8)
  1. GENOTROPIN [Suspect]
     Active Substance: SOMATROPIN
     Indication: Growth hormone deficiency
     Dosage: 1.0 MG X 5 DAYS - SATURDAY 1.4 MG - SUNDAY 1.6 MG
     Route: 058
     Dates: start: 202409
  2. GENOTROPIN [Suspect]
     Active Substance: SOMATROPIN
     Dosage: 1.0 MG X 5 DAYS - SATURDAY 1.4 MG - SUNDAY 1.6 MG
     Route: 058
     Dates: start: 202409
  3. GENOTROPIN [Suspect]
     Active Substance: SOMATROPIN
     Dosage: 1.0 MG X 5 DAYS - SATURDAY 1.4 MG - SUNDAY 1.6 MG
     Route: 058
     Dates: start: 202409
  4. MEDITHYROX [Concomitant]
     Indication: Hypothyroidism
     Dosage: 100 MG, 1X/DAY
     Dates: start: 2016
  5. ARIMIDEX [Concomitant]
     Active Substance: ANASTROZOLE
     Dosage: 1 MG, 1X/DAY
  6. OXANDROLONE [Concomitant]
     Active Substance: OXANDROLONE
     Dosage: 0.5 DF, 1X/DAY
  7. GLYCOFREN [Concomitant]
     Indication: Diabetes prophylaxis
     Dosage: 0.5 DF, 1X/DAY
  8. CALCIOFIX [Concomitant]
     Dosage: 600 MG, 1X/DAY

REACTIONS (6)
  - Device leakage [Unknown]
  - Device information output issue [Unknown]
  - Device physical property issue [Unknown]
  - Drug dose omission by device [Unknown]
  - Wrong technique in device usage process [Unknown]
  - Poor quality device used [Unknown]

NARRATIVE: CASE EVENT DATE: 20250820
